FAERS Safety Report 22048936 (Version 2)
Quarter: 2023Q1

REPORT INFORMATION
  Report Type: Spontaneous
  Country: ES (occurrence: ES)
  Receive Date: 20230301
  Receipt Date: 20230330
  Transmission Date: 20230417
  Serious: Yes (Other)
  Sender: FDA-Public Use
  Company Number: ES-Merck Healthcare KGaA-9384398

PATIENT
  Age: 68 Year
  Sex: Male

DRUGS (7)
  1. ERBITUX [Suspect]
     Active Substance: CETUXIMAB
     Indication: Colorectal cancer metastatic
     Dosage: 850 MG, OTHER(EVERY 15 DAYS)
     Route: 042
     Dates: start: 20221031, end: 20230110
  2. FLUOROURACIL [Suspect]
     Active Substance: FLUOROURACIL
     Indication: Colorectal cancer metastatic
     Dosage: UNK UNK, UNKNOWN
     Route: 065
  3. IRINOTECAN HYDROCHLORIDE [Suspect]
     Active Substance: IRINOTECAN HYDROCHLORIDE
     Indication: Colorectal cancer metastatic
     Dosage: UNK UNK, UNKNOWN
     Route: 065
  4. DEXAMETHASONE [Concomitant]
     Active Substance: DEXAMETHASONE
     Indication: Product used for unknown indication
  5. LEUCOVORIN CALCIUM [Concomitant]
     Active Substance: LEUCOVORIN CALCIUM
     Indication: Colorectal cancer metastatic
  6. ONDANSETRON [Concomitant]
     Active Substance: ONDANSETRON
     Indication: Product used for unknown indication
  7. ATROPINE [Concomitant]
     Active Substance: ATROPINE
     Indication: Product used for unknown indication

REACTIONS (3)
  - Necrosis [Unknown]
  - Ear infection fungal [Unknown]
  - Off label use [Unknown]

NARRATIVE: CASE EVENT DATE: 20230124
